FAERS Safety Report 8762606 (Version 2)
Quarter: 2012Q4

REPORT INFORMATION
  Report Type: 
  Country: TR (occurrence: TR)
  Receive Date: 20120830
  Receipt Date: 20120830
  Transmission Date: 20130627
  Serious: Yes (Other)
  Sender: FDA-Public Use
  Company Number: TR-BAXTER-2012BAX015686

PATIENT
  Age: 23 Year
  Sex: Female

DRUGS (4)
  1. KIOVIG [Suspect]
     Indication: IMPETIGO HERPETIFORMIS
     Dosage: 0.3 G/KG
  2. KIOVIG [Suspect]
     Dosage: 0.7 g/kg
  3. PREDNISOLONE [Suspect]
     Indication: IMPETIGO HERPETIFORMIS
  4. CYCLOSPORINE [Suspect]
     Indication: IMPETIGO HERPETIFORMIS

REACTIONS (5)
  - Exposure during pregnancy [Recovered/Resolved]
  - Oligohydramnios [Recovered/Resolved]
  - Amniotic fluid volume decreased [Recovered/Resolved]
  - Premature delivery [Recovered/Resolved]
  - Labour induction [None]
